FAERS Safety Report 4654850-7 (Version None)
Quarter: 2005Q2

REPORT INFORMATION
  Report Type: 
  Country: None (occurrence: None)
  Receive Date: 20050506
  Receipt Date: 20040819
  Transmission Date: 20051028
  Serious: No
  Sender: FDA-Public Use
  Company Number: US-GLAXOSMITHKLINE-A0522799A

PATIENT
  Age: 76 Year
  Sex: Female

DRUGS (7)
  1. AMOXICILLIN [Suspect]
     Dosage: 1TSP THREE TIMES PER DAY
     Route: 048
     Dates: start: 20040818
  2. WELLBUTRIN [Suspect]
     Indication: DEPRESSION
     Dosage: 150MG PER DAY
     Route: 048
     Dates: start: 20040818
  3. PAXIL [Suspect]
     Indication: DEPRESSION
     Route: 048
  4. NEXIUM [Concomitant]
  5. LITHIUM [Concomitant]
  6. SYNTHROID [Concomitant]
  7. TOPROL-XL [Concomitant]

REACTIONS (3)
  - DIARRHOEA [None]
  - DRUG INEFFECTIVE [None]
  - NAUSEA [None]
